FAERS Safety Report 13737960 (Version 1)
Quarter: 2017Q3

REPORT INFORMATION
  Report Type: Spontaneous
  Country: BR (occurrence: BR)
  Receive Date: 20170710
  Receipt Date: 20170710
  Transmission Date: 20171127
  Serious: Yes (Hospitalization)
  Sender: FDA-Public Use
  Company Number: PHHY2009BR45234

PATIENT
  Sex: Female

DRUGS (4)
  1. HYDERGINE [Suspect]
     Active Substance: ERGOLOID MESYLATES
     Dosage: 1MG/ML 20 DROPS BID
     Route: 048
  2. HYDERGINE [Suspect]
     Active Substance: ERGOLOID MESYLATES
     Dosage: 1MG/ML 10 DROPS BID
     Route: 048
  3. ENALAPRIL [Concomitant]
     Active Substance: ENALAPRIL
     Indication: HYPERTENSION
     Dosage: 5 MG, QD
  4. HYDERGINE [Suspect]
     Active Substance: ERGOLOID MESYLATES
     Indication: MEMORY IMPAIRMENT
     Dosage: 1MG/ML 30ML
     Route: 048

REACTIONS (6)
  - Sluggishness [Unknown]
  - Somnolence [Unknown]
  - Dizziness [Not Recovered/Not Resolved]
  - Hypertension [Unknown]
  - Fear [Not Recovered/Not Resolved]
  - Heart rate increased [Unknown]
